FAERS Safety Report 12860761 (Version 2)
Quarter: 2016Q4

REPORT INFORMATION
  Report Type: Spontaneous
  Country: KR (occurrence: KR)
  Receive Date: 20161019
  Receipt Date: 20161104
  Transmission Date: 20170207
  Serious: Yes (Other)
  Sender: FDA-Public Use
  Company Number: KR-009507513-1610KOR008708

PATIENT

DRUGS (2)
  1. FLUMARIN [Interacting]
     Active Substance: FLOMOXEF SODIUM
     Dosage: UNK
  2. BRIDION [Suspect]
     Active Substance: SUGAMMADEX
     Dosage: UNK

REACTIONS (4)
  - Brain injury [Unknown]
  - Respiratory arrest [Unknown]
  - Drug interaction [Unknown]
  - Coma [Not Recovered/Not Resolved]
